FAERS Safety Report 25297336 (Version 3)
Quarter: 2025Q3

REPORT INFORMATION
  Report Type: Report from Study
  Country: US (occurrence: US)
  Receive Date: 20250511
  Receipt Date: 20250718
  Transmission Date: 20251021
  Serious: No
  Sender: SANOFI AVENTIS
  Company Number: US-SA-2025SA132418

PATIENT
  Age: 36 Year
  Sex: Male

DRUGS (2)
  1. FABRAZYME [Suspect]
     Active Substance: AGALSIDASE BETA
     Indication: Fabry^s disease
     Dosage: 100 TOTAL, QOW
     Route: 042
     Dates: start: 200307
  2. FABRAZYME [Suspect]
     Active Substance: AGALSIDASE BETA
     Dosage: 100 MG, QOW
     Route: 042
     Dates: start: 201609

REACTIONS (5)
  - Oropharyngeal pain [Unknown]
  - Globotriaosylsphingosine increased [Recovering/Resolving]
  - Respiratory tract congestion [Unknown]
  - Abdominal discomfort [Unknown]
  - Reading disorder [Unknown]

NARRATIVE: CASE EVENT DATE: 20220328
